FAERS Safety Report 18440221 (Version 2)
Quarter: 2020Q4

REPORT INFORMATION
  Report Type: Report from Study
  Country: PK (occurrence: PK)
  Receive Date: 20201029
  Receipt Date: 20201215
  Transmission Date: 20210114
  Serious: Yes (Hospitalization, Other)
  Sender: FDA-Public Use
  Company Number: NVSC2020PK284713

PATIENT
  Age: 73 Year
  Sex: Male

DRUGS (9)
  1. LASIX [Concomitant]
     Active Substance: FUROSEMIDE
     Dosage: UNK (40 MG)
     Route: 065
  2. VILDUS [Concomitant]
     Indication: DIABETES MELLITUS
     Dosage: 1 DF, QD (50 MG)
     Route: 048
     Dates: start: 20190104
  3. UPERIO [Suspect]
     Active Substance: SACUBITRIL\VALSARTAN
     Indication: CARDIAC FAILURE
     Dosage: 1 DF, BID (200 MG)
     Route: 048
     Dates: start: 20190611, end: 20200602
  4. LANOXIN [Concomitant]
     Active Substance: DIGOXIN
     Indication: ATRIAL FIBRILLATION
     Dosage: 1 DF, QD (0.25 MG)
     Route: 048
     Dates: start: 20190104
  5. CONCOR [Concomitant]
     Active Substance: BISOPROLOL FUMARATE
     Indication: HYPERTENSION
     Dosage: 1 DF, QD (10 MG)
     Route: 048
     Dates: start: 20190104
  6. LASIX [Concomitant]
     Active Substance: FUROSEMIDE
     Indication: DIURETIC THERAPY
     Dosage: 2 DF, BID (20 MG)
     Route: 048
     Dates: start: 20190104
  7. FORTIUS [Concomitant]
     Indication: HYPERLIPIDAEMIA
     Dosage: 10 MG (1HS)
     Route: 048
     Dates: start: 20190104
  8. GLUCOPHAGE [Concomitant]
     Active Substance: METFORMIN HYDROCHLORIDE
     Indication: DIABETES MELLITUS
     Dosage: 1 DF, QD (750 MG)
     Route: 048
     Dates: start: 20190104
  9. XCEPT [Concomitant]
     Indication: DEEP VEIN THROMBOSIS
     Dosage: 20 MG (1HS)
     Route: 048
     Dates: start: 20190104

REACTIONS (16)
  - Pneumonia [Recovered/Resolved]
  - Kidney infection [Recovered/Resolved]
  - COVID-19 [Recovered/Resolved]
  - Fatigue [Recovered/Resolved with Sequelae]
  - Nausea [Recovered/Resolved with Sequelae]
  - Arthralgia [Unknown]
  - Asthenia [Recovered/Resolved with Sequelae]
  - Renal impairment [Recovered/Resolved with Sequelae]
  - Dyspnoea [Recovered/Resolved with Sequelae]
  - Musculoskeletal stiffness [Unknown]
  - Ejection fraction decreased [Unknown]
  - Myalgia [Recovered/Resolved with Sequelae]
  - Gait disturbance [Unknown]
  - Vomiting [Recovered/Resolved with Sequelae]
  - Acute respiratory distress syndrome [Recovered/Resolved with Sequelae]
  - Hydronephrosis [Recovered/Resolved with Sequelae]

NARRATIVE: CASE EVENT DATE: 202006
